FAERS Safety Report 8263916 (Version 4)
Quarter: 2013Q3

REPORT INFORMATION
  Report Type: Report from Study
  Country: JP (occurrence: JP)
  Receive Date: 20111128
  Receipt Date: 20130808
  Transmission Date: 20140515
  Serious: Yes (Hospitalization)
  Sender: FDA-Public Use
  Company Number: JP-ELI_LILLY_AND_COMPANY-JP201111005198

PATIENT
  Age: 75 Year
  Sex: Female

DRUGS (2)
  1. TERIPARATIDE [Suspect]
     Dosage: UNK
     Route: 058
     Dates: start: 20111102, end: 201212
  2. TERIPARATIDE [Suspect]
     Dosage: UNK
     Route: 058

REACTIONS (5)
  - Transient ischaemic attack [Unknown]
  - Expired drug administered [Unknown]
  - Muscle spasms [Unknown]
  - Muscle spasms [Unknown]
  - Malaise [Unknown]
